FAERS Safety Report 22350788 (Version 2)
Quarter: 2023Q4

REPORT INFORMATION
  Report Type: Spontaneous
  Country: US (occurrence: US)
  Receive Date: 20230522
  Receipt Date: 20231101
  Transmission Date: 20240110
  Serious: No
  Sender: FDA-Public Use
  Company Number: US-Santen Inc-2023-USA-004959

PATIENT
  Sex: Female

DRUGS (2)
  1. NATACYN [Suspect]
     Active Substance: NATAMYCIN
     Indication: Eye infection
     Dosage: EVERY 2 HOURS
     Route: 047
     Dates: start: 20230513, end: 20230513
  2. GENTAMICIN SULFATE [Concomitant]
     Active Substance: GENTAMICIN SULFATE
     Indication: Eye infection
     Dosage: EVERY 4 HOURS
     Route: 047

REACTIONS (12)
  - Product physical consistency issue [Unknown]
  - Product residue present [Unknown]
  - Eye pruritus [Recovered/Resolved]
  - Superficial injury of eye [Recovered/Resolved]
  - Product storage error [Unknown]
  - Eye discharge [Recovered/Resolved]
  - Product residue present [Unknown]
  - Eye pain [Recovered/Resolved]
  - Lacrimation increased [Recovered/Resolved]
  - Foreign body sensation in eyes [Recovered/Resolved]
  - Inappropriate schedule of product administration [Unknown]
  - Ocular hyperaemia [Recovered/Resolved]

NARRATIVE: CASE EVENT DATE: 20230513
